FAERS Safety Report 5704744-0 (Version None)
Quarter: 2008Q2

REPORT INFORMATION
  Report Type: 
  Country: None (occurrence: None)
  Receive Date: 20080414
  Receipt Date: 20080402
  Transmission Date: 20081010
  Serious: Yes (Death, Hospitalization)
  Sender: FDA-Public Use
  Company Number: GB-PFIZER INC-2007022661

PATIENT
  Age: 6 Year
  Sex: Female

DRUGS (12)
  1. EPIRUBICIN HYDROCHLORIDE [Suspect]
     Indication: RHABDOMYOSARCOMA
  2. CARBOPLATIN [Suspect]
     Indication: RHABDOMYOSARCOMA
  3. DACTINOMYCIN [Suspect]
     Indication: RHABDOMYOSARCOMA
  4. ETOPOSIDE [Suspect]
     Indication: RHABDOMYOSARCOMA
  5. IFOSFAMIDE [Suspect]
     Indication: RHABDOMYOSARCOMA
  6. VINCRISTINE [Suspect]
     Indication: RHABDOMYOSARCOMA
  7. DEXAMETHASONE [Suspect]
  8. CILASTATIN [Suspect]
     Route: 048
  9. IMIPENEM [Suspect]
     Route: 048
  10. CORTICOSTEROIDS [Concomitant]
  11. VINCRISTINE SULFATE [Concomitant]
  12. FLUCYTOSINE [Concomitant]

REACTIONS (8)
  - BETA HAEMOLYTIC STREPTOCOCCAL INFECTION [None]
  - BLOOD CULTURE POSITIVE [None]
  - CANDIDA SEROLOGY POSITIVE [None]
  - FEBRILE NEUTROPENIA [None]
  - MUCOSAL INFLAMMATION [None]
  - PNEUMONITIS [None]
  - RESPIRATORY FAILURE [None]
  - STRIDOR [None]
